FAERS Safety Report 5409554-X (Version None)
Quarter: 2007Q3

REPORT INFORMATION
  Report Type: 
  Country: None (occurrence: None)
  Receive Date: 20070807
  Receipt Date: 20070807
  Transmission Date: 20080115
  Serious: Yes (Hospitalization)
  Sender: FDA-Public Use
  Company Number: None

PATIENT
  Sex: Male
  Weight: 99.5 kg

DRUGS (2)
  1. TAXOTERE [Suspect]
     Dosage: 165.75 MG
  2. PREDNISONE TAB [Suspect]
     Dosage: 50 MG

REACTIONS (1)
  - FEBRILE NEUTROPENIA [None]
